FAERS Safety Report 7101363-9 (Version None)
Quarter: 2010Q4

REPORT INFORMATION
  Report Type: 
  Country: None (occurrence: None)
  Receive Date: 20101115
  Receipt Date: 20100119
  Transmission Date: 20110411
  Serious: No
  Sender: FDA-Public Use
  Company Number: US-PFIZER INC-2010008330

PATIENT
  Sex: Male
  Weight: 104.32 kg

DRUGS (1)
  1. MEDROL [Suspect]
     Indication: SKIN DISORDER
     Dates: start: 20090101, end: 20090201

REACTIONS (2)
  - MUSCLE DISORDER [None]
  - WEIGHT INCREASED [None]
